FAERS Safety Report 18521201 (Version 1)
Quarter: 2020Q4

REPORT INFORMATION
  Report Type: Spontaneous
  Country: US (occurrence: US)
  Receive Date: 20201119
  Receipt Date: 20201119
  Transmission Date: 20210114
  Serious: No
  Sender: FDA-Public Use
  Company Number: US-PFIZER INC-2020455237

PATIENT
  Sex: Female

DRUGS (6)
  1. ALPRAZOLAM. [Suspect]
     Active Substance: ALPRAZOLAM
  2. ATORVASTATIN CALCIUM. [Suspect]
     Active Substance: ATORVASTATIN CALCIUM
  3. MACRODANTIN [Suspect]
     Active Substance: NITROFURANTOIN
  4. TRANDATE [Suspect]
     Active Substance: LABETALOL HYDROCHLORIDE
  5. CODEINE [Suspect]
     Active Substance: CODEINE
  6. CARDIZEM [DILTIAZEM HYDROCHLORIDE] [Suspect]
     Active Substance: DILTIAZEM HYDROCHLORIDE

REACTIONS (1)
  - Drug hypersensitivity [Unknown]
